FAERS Safety Report 9224464 (Version 1)
Quarter: 2013Q1

REPORT INFORMATION
  Report Type: Spontaneous
  Country: US (occurrence: None)
  Receive Date: 20120926
  Receipt Date: 20120926
  Transmission Date: 20140127
  Serious: Yes (Other)
  Sender: FDA-Public Use
  Company Number: M-12-019

PATIENT
  Sex: Female

DRUGS (1)
  1. TRIAMTERENE + HYDROCHLOROTHIAZIDE [Suspect]
     Indication: HYPERTENSION
     Route: 048

REACTIONS (1)
  - Urticaria [None]
